FAERS Safety Report 9029792 (Version 1)
Quarter: 2013Q1

REPORT INFORMATION
  Report Type: Spontaneous
  Country: US (occurrence: US)
  Receive Date: 20130124
  Receipt Date: 20130124
  Transmission Date: 20140127
  Serious: Yes (Other)
  Sender: FDA-Public Use
  Company Number: US-JNJFOC-20130110252

PATIENT
  Age: 72 Year
  Sex: Female
  Weight: 65.32 kg

DRUGS (1)
  1. NEOSPORIN [Suspect]
     Indication: LACERATION
     Route: 061
     Dates: start: 201208

REACTIONS (2)
  - Skin papilloma [Recovered/Resolved]
  - Infection [Unknown]
